FAERS Safety Report 8353921-1 (Version None)
Quarter: 2012Q2

REPORT INFORMATION
  Report Type: 
  Country: None (occurrence: None)
  Receive Date: 20120511
  Receipt Date: 20120503
  Transmission Date: 20120825
  Serious: Yes (Other)
  Sender: FDA-Public Use
  Company Number: HR-ASTRAZENECA-2012SE28810

PATIENT
  Age: 44 Year
  Sex: Female

DRUGS (4)
  1. MIDAZOLAM HCL [Suspect]
     Indication: INDUCTION OF ANAESTHESIA
     Route: 042
     Dates: start: 20120101, end: 20120101
  2. ROCURONIUM BROMIDE [Suspect]
     Indication: INDUCTION OF ANAESTHESIA
     Route: 042
     Dates: start: 20120101, end: 20120101
  3. SUFENTANIL [Suspect]
     Indication: INDUCTION OF ANAESTHESIA
     Route: 042
     Dates: start: 20120101, end: 20120101
  4. DIPRIVAN [Suspect]
     Indication: INDUCTION OF ANAESTHESIA
     Route: 042
     Dates: start: 20120101, end: 20120101

REACTIONS (4)
  - BRONCHOSPASM [None]
  - HYPOTENSION [None]
  - CARDIAC ARREST [None]
  - HYPERSENSITIVITY [None]
